FAERS Safety Report 4317530-3 (Version None)
Quarter: 2004Q1

REPORT INFORMATION
  Report Type: 
  Country: None (occurrence: None)
  Receive Date: 20040312
  Receipt Date: 20040302
  Transmission Date: 20041129
  Serious: Yes (Death)
  Sender: FDA-Public Use
  Company Number: 2004-DE-00981GD (0)

PATIENT
  Age: 66 Year
  Sex: Male

DRUGS (4)
  1. PREDNISONE [Suspect]
     Indication: AMYLOIDOSIS
  2. PREDNISONE [Suspect]
     Indication: LYMPHOMA
  3. MELPHALAN (MELPHALAN) [Suspect]
     Indication: AMYLOIDOSIS
  4. MELPHALAN (MELPHALAN) [Suspect]
     Indication: LYMPHOMA

REACTIONS (3)
  - AMYLOIDOSIS [None]
  - DISEASE PROGRESSION [None]
  - PANCYTOPENIA [None]
